FAERS Safety Report 7129966-6 (Version None)
Quarter: 2010Q4

REPORT INFORMATION
  Report Type: 
  Country: None (occurrence: None)
  Receive Date: 20101130
  Receipt Date: 20101021
  Transmission Date: 20110411
  Serious: Yes (Other)
  Sender: FDA-Public Use
  Company Number: US-AMGEN-QUU441106

PATIENT

DRUGS (12)
  1. ARANESP [Suspect]
     Indication: RENAL FAILURE CHRONIC
     Dosage: 25 A?G, Q2WK
     Dates: start: 20080101
  2. PROCRIT [Suspect]
     Indication: RENAL FAILURE CHRONIC
     Dosage: UNK
     Dates: start: 20071210, end: 20080101
  3. IRON [Concomitant]
     Dosage: UNK UNK, UNK
  4. FUROSEMIDE [Concomitant]
     Dosage: UNK
  5. ASPIRIN LOW [Concomitant]
     Dosage: UNK
  6. COLACE [Concomitant]
     Dosage: UNK
  7. FISH OIL [Concomitant]
  8. PROCARDIA XL [Concomitant]
     Dosage: UNK
  9. DIOVAN [Concomitant]
     Dosage: UNK
  10. OMEPRAZOLE [Concomitant]
     Dosage: 10 MG, QD
  11. ZETIA [Concomitant]
     Dosage: 10 MG, QD
  12. NOVOLOG [Concomitant]

REACTIONS (2)
  - FATIGUE [None]
  - HAEMOGLOBIN DECREASED [None]
